FAERS Safety Report 12802269 (Version 1)
Quarter: 2016Q4

REPORT INFORMATION
  Report Type: Spontaneous
  Country: US (occurrence: US)
  Receive Date: 20161003
  Receipt Date: 20161003
  Transmission Date: 20170207
  Serious: Yes (Other)
  Sender: FDA-Public Use
  Company Number: None

PATIENT
  Age: 25 Year
  Sex: Female
  Weight: 83.92 kg

DRUGS (2)
  1. IMPLANON [Suspect]
     Active Substance: ETONOGESTREL
     Indication: CONTRACEPTION
     Dosage: 1 INJECTION(S) IMPLANT GIVEN INTO/UNDER THE SKIN
     Route: 058
  2. MOTRIN [Concomitant]
     Active Substance: IBUPROFEN

REACTIONS (5)
  - Nausea [None]
  - Ovarian cyst [None]
  - Dizziness [None]
  - Migration of implanted drug [None]
  - Gastric disorder [None]

NARRATIVE: CASE EVENT DATE: 20130304
